FAERS Safety Report 6385682-X (Version None)
Quarter: 2009Q4

REPORT INFORMATION
  Report Type: 
  Country: None (occurrence: None)
  Receive Date: 20091002
  Receipt Date: 20081014
  Transmission Date: 20100525
  Serious: No
  Sender: FDA-Public Use
  Company Number: US-ASTRAZENECA-2008UW22736

PATIENT
  Age: 61 Year
  Sex: Female

DRUGS (5)
  1. ARIMIDEX [Suspect]
     Route: 048
     Dates: start: 20051201
  2. LIPITOR [Concomitant]
  3. ACIPHEX [Concomitant]
  4. ATACAND [Concomitant]
  5. RESTASIS [Concomitant]

REACTIONS (1)
  - PAIN IN EXTREMITY [None]
